FAERS Safety Report 22294288 (Version 2)
Quarter: 2023Q2

REPORT INFORMATION
  Report Type: Report from Study
  Country: US (occurrence: US)
  Receive Date: 20230508
  Receipt Date: 20230512
  Transmission Date: 20230721
  Serious: No
  Sender: FDA-Public Use
  Company Number: US-002147023-NVSC2023US103490

PATIENT
  Sex: Female
  Weight: 78.92 kg

DRUGS (3)
  1. COSENTYX [Suspect]
     Active Substance: SECUKINUMAB
     Indication: Psoriasis
     Dosage: 300 MG (2 PENS (150 MG/ML))
     Route: 058
  2. LIDOCAINE [Suspect]
     Active Substance: LIDOCAINE
     Indication: Psoriasis
     Dosage: 4 % (ADHESIVE PATCH, MEDICATED)
     Route: 061
  3. VITAMINS [Suspect]
     Active Substance: VITAMINS
     Indication: Psoriasis
     Dosage: UNK (ADULTS)
     Route: 048

REACTIONS (10)
  - Arthritis [Unknown]
  - Seborrhoeic keratosis [Unknown]
  - Purpura senile [Unknown]
  - Psoriasis [Unknown]
  - Pruritus [Unknown]
  - Erythema [Unknown]
  - Cyst [Unknown]
  - Acne [Unknown]
  - Papule [Unknown]
  - Product use in unapproved indication [Unknown]
